FAERS Safety Report 7545781-3 (Version None)
Quarter: 2011Q2

REPORT INFORMATION
  Report Type: 
  Country: None (occurrence: None)
  Receive Date: 20110614
  Receipt Date: 20110607
  Transmission Date: 20111010
  Serious: Yes (Other)
  Sender: FDA-Public Use
  Company Number: US-SANOFI-AVENTIS-2011SA025863

PATIENT
  Age: 72 Year
  Sex: Female
  Weight: 58 kg

DRUGS (6)
  1. PLAVIX [Concomitant]
  2. MULTAQ [Suspect]
     Route: 048
     Dates: start: 20100420, end: 20110422
  3. ASPIRIN [Concomitant]
  4. SIMVASTATIN [Concomitant]
  5. MULTAQ [Suspect]
     Indication: ATRIAL FIBRILLATION
     Route: 048
     Dates: start: 20100401, end: 20100415
  6. LISINOPRIL [Concomitant]

REACTIONS (8)
  - DIZZINESS [None]
  - UNDERDOSE [None]
  - PRURITUS [None]
  - MALAISE [None]
  - TINNITUS [None]
  - PRODUCT QUALITY ISSUE [None]
  - PRODUCT TASTE ABNORMAL [None]
  - CARDIAC DISORDER [None]
